FAERS Safety Report 5149481-9 (Version None)
Quarter: 2006Q4

REPORT INFORMATION
  Report Type: 
  Country: None (occurrence: None)
  Receive Date: 20061113
  Receipt Date: 20061031
  Transmission Date: 20070319
  Serious: Yes (Other)
  Sender: FDA-Public Use
  Company Number: PHEH2006US13587

PATIENT
  Age: 7 Year
  Sex: Female

DRUGS (2)
  1. EXJADE [Suspect]
     Indication: HAEMOGLOBIN E-THALASSAEMIA DISEASE
     Dosage: 375 MG, UNK
     Dates: start: 20060501, end: 20061016
  2. FOLIC ACID [Concomitant]
     Dosage: 1 MG, QD

REACTIONS (2)
  - BLINDNESS TRANSIENT [None]
  - BLINDNESS UNILATERAL [None]
